FAERS Safety Report 9739571 (Version 4)
Quarter: 2014Q1

REPORT INFORMATION
  Report Type: Spontaneous
  Country: JP (occurrence: JP)
  Receive Date: 20131209
  Receipt Date: 20140115
  Transmission Date: 20141002
  Serious: Yes (Death, Life-Threatening, Hospitalization)
  Sender: FDA-Public Use
  Company Number: JP-B.I. PHARMACEUTICALS,INC./RIDGEFIELD-2013-BI-41162NB

PATIENT
  Age: 98 Year
  Sex: Female
  Weight: 35.2 kg

DRUGS (10)
  1. PRAZAXA [Suspect]
     Indication: ATRIAL FIBRILLATION
     Dosage: 220 MG
     Route: 048
     Dates: start: 20110615, end: 20110702
  2. PRAZAXA [Suspect]
     Dosage: 220 MG
     Route: 048
     Dates: start: 20110703, end: 20110712
  3. DEPAKENE / SODIUM VALPROATE [Concomitant]
     Indication: PROPHYLAXIS
     Dosage: 8 ML
     Dates: start: 20110713, end: 20110715
  4. NICHOLIN / CITICOLINE [Concomitant]
     Indication: CEREBRAL INFARCTION
     Dosage: 1 G
     Route: 042
     Dates: start: 20110703, end: 20110711
  5. GASTER D / FAMOTIDINE [Concomitant]
     Indication: GASTRITIS
     Dosage: 20 MG
     Dates: start: 20070322, end: 20110715
  6. LANIRAPID / METILDIGOXIN [Concomitant]
     Indication: CARDIAC FAILURE CONGESTIVE
     Dosage: 0.05 MG
     Dates: start: 20070322, end: 20110715
  7. MICAMLO / TELMISARTAN_AMLODIPINE BESILATE COMBINED DRUG [Concomitant]
     Indication: HYPERTENSION
     Dates: start: 20110601, end: 20110715
  8. ALDACTONE A / SPIRONOLACTONE [Concomitant]
     Indication: CARDIAC FAILURE CONGESTIVE
     Dosage: 12.5 MG
     Dates: start: 20070625, end: 20110715
  9. LASIX / FUROSEMIDE [Concomitant]
     Indication: CARDIAC FAILURE CONGESTIVE
     Dosage: 10 MG
     Dates: start: 20070327, end: 20110715
  10. FRANDOL S / ISOSORBIDE DINITRATE [Concomitant]
     Indication: ANGINA PECTORIS
     Dosage: 40 MG
     Route: 065
     Dates: start: 20080813, end: 20110715

REACTIONS (5)
  - Cardiac failure chronic [Fatal]
  - Haematemesis [Fatal]
  - Upper gastrointestinal haemorrhage [Fatal]
  - Embolic cerebral infarction [Fatal]
  - General physical health deterioration [Fatal]
